FAERS Safety Report 20853148 (Version 2)
Quarter: 2023Q1

REPORT INFORMATION
  Report Type: Report from Study
  Country: US (occurrence: US)
  Receive Date: 20220520
  Receipt Date: 20230221
  Transmission Date: 20230418
  Serious: Yes (Hospitalization, Other)
  Sender: FDA-Public Use
  Company Number: US-KOREA IPSEN Pharma-2022-02770

PATIENT
  Age: 67 Year
  Sex: Male

DRUGS (1)
  1. SOMATULINE DEPOT [Suspect]
     Active Substance: LANREOTIDE ACETATE
     Indication: Carcinoid syndrome
     Dates: start: 201902

REACTIONS (16)
  - Cholangitis [Recovering/Resolving]
  - Vein rupture [Recovering/Resolving]
  - Device related infection [Recovered/Resolved]
  - Device occlusion [Recovered/Resolved]
  - Blood alkaline phosphatase increased [Recovering/Resolving]
  - Aspartate aminotransferase increased [Recovering/Resolving]
  - Alanine aminotransferase increased [Recovering/Resolving]
  - Skin mass [Recovering/Resolving]
  - Constipation [Recovered/Resolved]
  - Diarrhoea [Recovering/Resolving]
  - Injection site scar [Recovering/Resolving]
  - Liver disorder [Recovering/Resolving]
  - Pain [Recovered/Resolved]
  - Blood bilirubin increased [Recovered/Resolved]
  - Flushing [Recovered/Resolved]
  - Influenza like illness [Recovered/Resolved]

NARRATIVE: CASE EVENT DATE: 20210901
